APPROVED DRUG PRODUCT: AMPHOTERICIN B
Active Ingredient: AMPHOTERICIN B
Strength: 50MG/VIAL
Dosage Form/Route: INJECTABLE, LIPOSOMAL;INJECTION
Application: A212967 | Product #001 | TE Code: AB
Applicant: MYLAN LABORATORIES LTD
Approved: Jun 30, 2025 | RLD: No | RS: No | Type: RX